FAERS Safety Report 13846327 (Version 1)
Quarter: 2017Q3

REPORT INFORMATION
  Report Type: Spontaneous
  Country: US (occurrence: US)
  Receive Date: 20170808
  Receipt Date: 20170808
  Transmission Date: 20171127
  Serious: No
  Sender: FDA-Public Use
  Company Number: US-ROCHE-700941

PATIENT
  Age: 66 Year
  Sex: Female
  Weight: 52.2 kg

DRUGS (3)
  1. DRISDOL [Concomitant]
     Active Substance: ERGOCALCIFEROL
     Indication: VITAMIN D DEFICIENCY
     Dosage: DOSE: 50000
     Route: 048
     Dates: start: 20091030, end: 20100126
  2. BONIVA [Suspect]
     Active Substance: IBANDRONATE SODIUM
     Indication: OSTEOPOROSIS
     Dosage: THE PATIENT TOOK BONIVA ONLY ONCE.
     Route: 048
     Dates: start: 201002, end: 20100329
  3. ZOMIG [Concomitant]
     Active Substance: ZOLMITRIPTAN
     Route: 065

REACTIONS (2)
  - Nausea [Recovered/Resolved]
  - Migraine [Recovered/Resolved]

NARRATIVE: CASE EVENT DATE: 201002
